FAERS Safety Report 8876207 (Version 1)
Quarter: 2012Q4

REPORT INFORMATION
  Report Type: 
  Country: US (occurrence: US)
  Receive Date: 20121030
  Receipt Date: 20121030
  Transmission Date: 20130627
  Serious: No
  Sender: FDA-Public Use
  Company Number: US-B.I. PHARMACEUTICALS,INC./RIDGEFIELD-2012-BP-26037BP

PATIENT
  Sex: Female
  Weight: 80 kg

DRUGS (6)
  1. SPIRIVA [Suspect]
     Indication: CHRONIC OBSTRUCTIVE PULMONARY DISEASE
     Dosage: 18 mcg
     Route: 055
     Dates: start: 2008
  2. CITALOPRAM [Concomitant]
     Indication: DEPRESSION
     Dosage: 40 mg
     Route: 048
     Dates: start: 2009
  3. ALBUTEROL [Concomitant]
     Indication: EMPHYSEMA
     Dosage: 160 mg
     Route: 055
     Dates: start: 2008
  4. NEXIUM [Concomitant]
     Indication: GASTROOESOPHAGEAL REFLUX DISEASE
     Dosage: 40 mg
     Route: 048
     Dates: start: 2007
  5. DIAZEPAM [Concomitant]
     Indication: DEPRESSION
     Dosage: 10 mg
     Route: 048
     Dates: start: 2009
  6. MORPHINE [Concomitant]
     Indication: BACK PAIN
     Dosage: 30 mg
     Route: 048
     Dates: start: 2010

REACTIONS (2)
  - Corrective lens user [Not Recovered/Not Resolved]
  - Visual impairment [Not Recovered/Not Resolved]
